FAERS Safety Report 6675084-0 (Version None)
Quarter: 2010Q2

REPORT INFORMATION
  Report Type: 
  Country: None (occurrence: None)
  Receive Date: 20100407
  Receipt Date: 20100323
  Transmission Date: 20101027
  Serious: Yes (Hospitalization)
  Sender: FDA-Public Use
  Company Number: 2010BI010017

PATIENT
  Sex: Male

DRUGS (3)
  1. ZEVALIN [Suspect]
     Indication: NON-HODGKIN'S LYMPHOMA
     Dosage: 1X; IV
     Route: 042
     Dates: start: 20090819, end: 20090826
  2. COD MEDS [Concomitant]
  3. PREV MEDS [Concomitant]

REACTIONS (1)
  - CYSTITIS HAEMORRHAGIC [None]
